FAERS Safety Report 12296774 (Version 1)
Quarter: 2016Q2

REPORT INFORMATION
  Report Type: Spontaneous
  Country: US (occurrence: US)
  Receive Date: 20160422
  Receipt Date: 20160422
  Transmission Date: 20160815
  Serious: Yes (Other)
  Sender: FDA-Public Use
  Company Number: ADR-2015-00475

PATIENT
  Age: 41 Year
  Sex: Female
  Weight: 86 kg

DRUGS (21)
  1. VITAMIN D [Suspect]
     Active Substance: CHOLECALCIFEROL
     Route: 065
  2. KETOCONAZOLE SHAMPOO [Suspect]
     Active Substance: KETOCONAZOLE
     Route: 065
  3. ONDANSETRON [Suspect]
     Active Substance: ONDANSETRON
     Route: 065
  4. LIORESAL [Suspect]
     Active Substance: BACLOFEN
     Route: 037
  5. DIAZEPAM. [Suspect]
     Active Substance: DIAZEPAM
     Route: 065
  6. COLACE [Suspect]
     Active Substance: DOCUSATE SODIUM
     Route: 065
  7. MIRAPEX [Suspect]
     Active Substance: PRAMIPEXOLE DIHYDROCHLORIDE
     Route: 065
  8. TRIAMCINOLONE CREAM [Suspect]
     Active Substance: TRIAMCINOLONE
     Route: 065
  9. MICONAZOLE POWDER [Suspect]
     Active Substance: MICONAZOLE
     Route: 065
  10. TRAMADOL. [Suspect]
     Active Substance: TRAMADOL
     Route: 065
  11. TYSABRI [Suspect]
     Active Substance: NATALIZUMAB
     Route: 065
  12. LIORESAL [Suspect]
     Active Substance: BACLOFEN
     Route: 037
  13. ACETAMINOPHEN. [Suspect]
     Active Substance: ACETAMINOPHEN
     Route: 065
  14. CITALOPRAM [Suspect]
     Active Substance: CITALOPRAM HYDROBROMIDE
     Route: 065
  15. LIORESAL [Suspect]
     Active Substance: BACLOFEN
     Dosage: 371.3 MCG/DAY
     Route: 037
  16. ACITRETIN. [Suspect]
     Active Substance: ACITRETIN
     Route: 065
  17. DRONABINOL. [Suspect]
     Active Substance: DRONABINOL
     Route: 065
  18. GABAPENTIN. [Suspect]
     Active Substance: GABAPENTIN
     Route: 065
  19. VITAMIN B12 [Suspect]
     Active Substance: CYANOCOBALAMIN
     Route: 065
  20. LIORESAL [Suspect]
     Active Substance: BACLOFEN
     Dosage: 264 MCG/DAY
     Route: 037
     Dates: start: 20150326, end: 20150514
  21. OXYCODONE [Suspect]
     Active Substance: OXYCODONE
     Route: 065

REACTIONS (7)
  - Wound dehiscence [Recovered/Resolved]
  - Medical device site discharge [Recovered/Resolved]
  - Implant site infection [None]
  - Impaired healing [Recovered/Resolved]
  - Muscle spasticity [Recovered/Resolved]
  - No therapeutic response [Recovered/Resolved]
  - Medical device site erosion [Recovered/Resolved]

NARRATIVE: CASE EVENT DATE: 201501
